FAERS Safety Report 4330834-3 (Version None)
Quarter: 2004Q1

REPORT INFORMATION
  Report Type: 
  Country: None (occurrence: None)
  Receive Date: 20040331
  Receipt Date: 20040317
  Transmission Date: 20041129
  Serious: Yes (Hospitalization)
  Sender: FDA-Public Use
  Company Number: US069733

PATIENT
  Sex: Male
  Weight: 125 kg

DRUGS (1)
  1. EPOGEN [Suspect]
     Indication: DIALYSIS
     Dosage: 80000 U, 3 IN 1 WEEKS

REACTIONS (6)
  - DIALYSIS [None]
  - HAEMOGLOBIN DECREASED [None]
  - HYPOTENSION [None]
  - SEPSIS [None]
  - THERAPY NON-RESPONDER [None]
  - TRANSPLANT FAILURE [None]
